FAERS Safety Report 6519577-5 (Version None)
Quarter: 2009Q4

REPORT INFORMATION
  Report Type: 
  Country: None (occurrence: None)
  Receive Date: 20091228
  Receipt Date: 20091210
  Transmission Date: 20100525
  Serious: Yes (Death, Other)
  Sender: FDA-Public Use
  Company Number: US-ROCHE-676124

PATIENT
  Age: 36 Year
  Sex: Female

DRUGS (2)
  1. BEVACIZUMAB [Suspect]
     Dosage: LAST DOSE: 13 NOV 2009, CYCLE 1, DAY 15, FREQUENCY: OVER 30-90MINS ON DAY1,15 AND 29, CYCLE 42 DAYS
     Route: 042
     Dates: start: 20091030
  2. SUNITINIB [Suspect]
     Dosage: LAST DOSE: 21 NOV 2009, CYCLE 1, DAY 23, FREQUENCY: ONCE DAILY ON DAYS 1-28
     Route: 048
     Dates: start: 20091030

REACTIONS (5)
  - DEATH [None]
  - HYPOTENSION [None]
  - NEUTROPENIA [None]
  - PERICARDIAL EFFUSION [None]
  - PLATELET COUNT DECREASED [None]
